FAERS Safety Report 10015606 (Version 2)
Quarter: 2014Q1

REPORT INFORMATION
  Report Type: Spontaneous
  Country: JP (occurrence: JP)
  Receive Date: 20140317
  Receipt Date: 20140317
  Transmission Date: 20141002
  Serious: Yes (Other)
  Sender: FDA-Public Use
  Company Number: JP-ASTRAZENECA-2013SE74018

PATIENT
  Age: 41 Year
  Sex: Male

DRUGS (1)
  1. XYLOCAINE VISCOUS [Suspect]
     Indication: LOCAL ANAESTHESIA
     Dosage: DOSE UNKNOWN
     Route: 049
     Dates: start: 201004

REACTIONS (2)
  - Laryngeal stenosis [Recovered/Resolved]
  - Anaphylactic reaction [Recovered/Resolved]
